FAERS Safety Report 8603417-4 (Version None)
Quarter: 2012Q3

REPORT INFORMATION
  Report Type: 
  Country: None (occurrence: None)
  Receive Date: 20120817
  Receipt Date: 20120814
  Transmission Date: 20120928
  Serious: Yes (Life-Threatening)
  Sender: FDA-Public Use
  Company Number: PH-ABBOTT-12P-128-0967969-00

PATIENT
  Age: 38 Year
  Sex: Female

DRUGS (1)
  1. PROGESTERONE [Suspect]
     Indication: PROPHYLAXIS OF ABORTION
     Dosage: FROM 26 WEEKS TO 36 WEEKS AOG.
     Route: 065

REACTIONS (3)
  - MATERNAL EXPOSURE DURING PREGNANCY [None]
  - PROCEDURAL HAEMORRHAGE [None]
  - CAESAREAN SECTION [None]
